FAERS Safety Report 8175819-4 (Version None)
Quarter: 2012Q1

REPORT INFORMATION
  Report Type: 
  Country: None (occurrence: None)
  Receive Date: 20120301
  Receipt Date: 20120223
  Transmission Date: 20120608
  Serious: No
  Sender: FDA-Public Use
  Company Number: US-BAYER-2012-016681

PATIENT
  Age: 75 Year
  Sex: Male

DRUGS (1)
  1. ADALAT CC [Suspect]
     Indication: HYPERTENSION
     Dosage: 30 MG, UNK
     Route: 048

REACTIONS (3)
  - AIRWAY BURNS [None]
  - FEELING HOT [None]
  - PAIN [None]
